FAERS Safety Report 23504912 (Version 1)
Quarter: 2024Q1

REPORT INFORMATION
  Report Type: Spontaneous
  Country: PL (occurrence: PL)
  Receive Date: 20240209
  Receipt Date: 20240209
  Transmission Date: 20240409
  Serious: No
  Sender: FDA-Public Use
  Company Number: None

PATIENT
  Age: 55 Year
  Sex: Male

DRUGS (6)
  1. GABAPENTIN [Suspect]
     Active Substance: GABAPENTIN
     Indication: Trigeminal neuralgia
     Dosage: UNK, TID (3 X 300 MILLIGRAM UP TO 3 X 600 MILLIGRAM)
     Route: 065
  2. LAMOTRIGINE [Suspect]
     Active Substance: LAMOTRIGINE
     Indication: Trigeminal neuralgia
     Dosage: 25 MILLIGRAM
     Route: 065
  3. LAMOTRIGINE [Suspect]
     Active Substance: LAMOTRIGINE
     Dosage: 50 MILLIGRAM
     Route: 065
  4. CARBAMAZEPINE [Suspect]
     Active Substance: CARBAMAZEPINE
     Indication: Trigeminal neuralgia
     Dosage: 100 MILLIGRAM, TID
     Route: 065
  5. CLONAZEPAM [Suspect]
     Active Substance: CLONAZEPAM
     Indication: Trigeminal neuralgia
     Dosage: 0.5 MILLIGRAM, TID
     Route: 065
  6. PHENYTOIN [Suspect]
     Active Substance: PHENYTOIN
     Indication: Trigeminal neuralgia
     Dosage: 400 MG/DAY (100-100-200 MILLIGRAM)
     Route: 065

REACTIONS (4)
  - Somnolence [Unknown]
  - Vision blurred [Unknown]
  - Drug ineffective [Unknown]
  - Therapy partial responder [Unknown]
